APPROVED DRUG PRODUCT: KARIVA
Active Ingredient: DESOGESTREL; ETHINYL ESTRADIOL
Strength: 0.15MG,N/A;0.02MG,0.01MG
Dosage Form/Route: TABLET;ORAL-28
Application: A075863 | Product #001 | TE Code: AB
Applicant: BARR LABORATORIES INC
Approved: Apr 5, 2002 | RLD: No | RS: Yes | Type: RX